FAERS Safety Report 4600893-9 (Version None)
Quarter: 2005Q1

REPORT INFORMATION
  Report Type: 
  Country: None (occurrence: None)
  Receive Date: 20050127
  Receipt Date: 20041029
  Transmission Date: 20050727
  Serious: Yes (Hospitalization)
  Sender: FDA-Public Use
  Company Number: USA040977645

PATIENT
  Age: 7 Year
  Sex: Male
  Weight: 23 kg

DRUGS (4)
  1. STRATTERA [Suspect]
     Indication: ATTENTION DEFICIT/HYPERACTIVITY DISORDER
     Dosage: 36 MG IN THE MORNING
     Dates: end: 20040901
  2. PHENERGAN [Concomitant]
  3. GUAIFENESIN (GUAIFENESIN L.A.) [Concomitant]
  4. ZANTAC [Concomitant]

REACTIONS (4)
  - DRUG INEFFECTIVE [None]
  - GASTROENTERITIS VIRAL [None]
  - GASTROOESOPHAGEAL REFLUX DISEASE [None]
  - PRESCRIBED OVERDOSE [None]
